FAERS Safety Report 7996795 (Version 2)
Quarter: 2012Q4

REPORT INFORMATION
  Report Type: 
  Country: CA (occurrence: CA)
  Receive Date: 20110617
  Receipt Date: 20121109
  Transmission Date: 20130627
  Serious: Yes (Other)
  Sender: FDA-Public Use
  Company Number: PHHY2008CA06175

PATIENT
  Sex: Male

DRUGS (10)
  1. SANDOSTATIN LAR [Suspect]
     Indication: CARCINOID TUMOUR
     Dosage: 60 mg, TIW
     Route: 030
     Dates: start: 20040701
  2. NASONEX [Concomitant]
  3. COTAZYM [Concomitant]
     Dosage: 300 mg, 10DF/day
  4. INDAPAMIDE [Concomitant]
     Indication: BLOOD PRESSURE
     Dosage: 1.25 mg, QD
  5. BISOPROLOL [Concomitant]
     Dosage: 5 mg, QD
  6. INHIBACE [Concomitant]
     Dosage: 10 mg, QD
  7. CELEBREX [Concomitant]
     Dosage: 100 mg, QD
  8. TIAZAC [Concomitant]
     Dosage: 240 mg, UNK
  9. PANTOLOC [Concomitant]
     Dosage: 40 mg, QD
  10. EFFEXOR [Concomitant]
     Dosage: 75 mg, QD

REACTIONS (5)
  - Herpes zoster [Recovering/Resolving]
  - Blood pressure decreased [Unknown]
  - Blood pressure systolic increased [Unknown]
  - Wheezing [Unknown]
  - Flushing [Unknown]
